FAERS Safety Report 16044720 (Version 4)
Quarter: 2019Q3

REPORT INFORMATION
  Report Type: Spontaneous
  Country: US (occurrence: US)
  Receive Date: 20190306
  Receipt Date: 20190828
  Transmission Date: 20191004
  Serious: Yes (Other)
  Sender: FDA-Public Use
  Company Number: US-ELI_LILLY_AND_COMPANY-US201902014064

PATIENT
  Sex: Female

DRUGS (2)
  1. ZYPREXA RELPREVV [Suspect]
     Active Substance: OLANZAPINE PAMOATE
     Indication: SCHIZOPHRENIA
     Dosage: UNK UNK, MONTHLY (1/M)
     Route: 030
  2. LATUDA [Suspect]
     Active Substance: LURASIDONE HYDROCHLORIDE
     Indication: PRODUCT USED FOR UNKNOWN INDICATION
     Dosage: UNK UNK, UNKNOWN
     Route: 065

REACTIONS (14)
  - Road traffic accident [Unknown]
  - Weight increased [Unknown]
  - Pollakiuria [Unknown]
  - Fatigue [Unknown]
  - Nausea [Unknown]
  - Asthenia [Unknown]
  - Diabetes mellitus [Unknown]
  - Cerebral disorder [Unknown]
  - Cystitis [Unknown]
  - Back pain [Unknown]
  - Dizziness [Unknown]
  - Diarrhoea [Unknown]
  - Urinary incontinence [Unknown]
  - Loss of consciousness [Unknown]
